FAERS Safety Report 12342581 (Version 3)
Quarter: 2016Q2

REPORT INFORMATION
  Report Type: Spontaneous
  Country: JP (occurrence: JP)
  Receive Date: 20160506
  Receipt Date: 20160520
  Transmission Date: 20160815
  Serious: Yes (Other)
  Sender: FDA-Public Use
  Company Number: JP-MDT-ADR-2016-00823

PATIENT
  Age: 43 Year
  Sex: Male

DRUGS (2)
  1. GABALON [Suspect]
     Active Substance: BACLOFEN
     Dosage: 35MCG/DAY
     Route: 037
  2. GABALON [Suspect]
     Active Substance: BACLOFEN
     Dosage: 50MCG/DAY
     Route: 037

REACTIONS (1)
  - Lumbar spinal stenosis [Not Recovered/Not Resolved]
